FAERS Safety Report 5639885-X (Version None)
Quarter: 2008Q1

REPORT INFORMATION
  Report Type: 
  Country: None (occurrence: None)
  Receive Date: 20080226
  Receipt Date: 20080226
  Transmission Date: 20080703
  Serious: Yes (Death, Life-Threatening, Hospitalization, Other)
  Sender: FDA-Public Use
  Company Number: None

PATIENT
  Sex: Female
  Weight: 99.7913 kg

DRUGS (1)
  1. XANAX XR [Suspect]
     Indication: ANXIETY
     Dosage: PO
     Route: 048
     Dates: start: 20070410, end: 20070417

REACTIONS (7)
  - ANGER [None]
  - DEPERSONALISATION [None]
  - DEREALISATION [None]
  - HALLUCINATION [None]
  - HOMICIDE [None]
  - MANIA [None]
  - SUICIDAL IDEATION [None]
